FAERS Safety Report 15931998 (Version 1)
Quarter: 2019Q1

REPORT INFORMATION
  Report Type: Spontaneous
  Country: IT (occurrence: IT)
  Receive Date: 20190207
  Receipt Date: 20190207
  Transmission Date: 20190417
  Serious: Yes (Hospitalization, Other)
  Sender: FDA-Public Use
  Company Number: IT-AMGEN-ITANI2019015235

PATIENT
  Age: 86 Year
  Sex: Male
  Weight: 80 kg

DRUGS (8)
  1. FUROSEMIDE. [Suspect]
     Active Substance: FUROSEMIDE
     Indication: HYPOVOLAEMIA
     Dosage: 50 MG, UNK
     Route: 048
     Dates: start: 20180830, end: 20180910
  2. METOLAZONE. [Suspect]
     Active Substance: METOLAZONE
     Indication: HYPOVOLAEMIA
     Dosage: 5 MG, UNK
     Route: 048
     Dates: start: 20180830
  3. FUROSEMIDE. [Suspect]
     Active Substance: FUROSEMIDE
     Indication: CONGESTIVE CARDIOMYOPATHY
     Dosage: 125 MG, UNK
     Route: 048
  4. ARANESP [Suspect]
     Active Substance: DARBEPOETIN ALFA
     Indication: NEPHROGENIC ANAEMIA
     Dosage: UNK
     Route: 065
  5. SPIRONOLACTONE. [Suspect]
     Active Substance: SPIRONOLACTONE
     Indication: CONGESTIVE CARDIOMYOPATHY
     Dosage: 100 MG, UNK
     Route: 048
  6. SPIRONOLACTONE. [Suspect]
     Active Substance: SPIRONOLACTONE
     Indication: HYPOVOLAEMIA
     Dosage: 37 MG, UNK
     Route: 048
     Dates: start: 20180802
  7. DAPRODUSTAT [Suspect]
     Active Substance: DAPRODUSTAT
     Indication: NEPHROGENIC ANAEMIA
     Dosage: UNK
     Route: 065
  8. METOLAZONE. [Suspect]
     Active Substance: METOLAZONE
     Indication: CONGESTIVE CARDIOMYOPATHY

REACTIONS (1)
  - Acute kidney injury [Recovered/Resolved]

NARRATIVE: CASE EVENT DATE: 20181128
